FAERS Safety Report 25771242 (Version 1)
Quarter: 2025Q3

REPORT INFORMATION
  Report Type: Spontaneous
  Country: US (occurrence: US)
  Receive Date: 20250908
  Receipt Date: 20250908
  Transmission Date: 20251021
  Serious: No
  Sender: DOMPE FARMACEUTICI
  Company Number: US-FARMAPROD-202504-1127

PATIENT
  Sex: Female
  Weight: 40.82 kg

DRUGS (13)
  1. OXERVATE [Suspect]
     Active Substance: CENEGERMIN-BKBJ
     Indication: Neurotrophic keratopathy
     Route: 047
     Dates: start: 20250127, end: 20250324
  2. OXERVATE [Suspect]
     Active Substance: CENEGERMIN-BKBJ
     Route: 047
     Dates: start: 20250326
  3. OXERVATE [Suspect]
     Active Substance: CENEGERMIN-BKBJ
  4. PROLIA [Concomitant]
     Active Substance: DENOSUMAB
  5. MIEBO [Concomitant]
     Active Substance: PERFLUOROHEXYLOCTANE
  6. XIIDRA [Concomitant]
     Active Substance: LIFITEGRAST
  7. HUMIRA [Concomitant]
     Active Substance: ADALIMUMAB
  8. VITAMINS [Concomitant]
     Active Substance: VITAMINS
  9. CYANOCOBALAMIN [Concomitant]
     Active Substance: CYANOCOBALAMIN
  10. PROTONIX [Concomitant]
     Active Substance: PANTOPRAZOLE SODIUM
  11. LOPERAMIDE [Concomitant]
     Active Substance: LOPERAMIDE
  12. DIFLUPREDNATE [Concomitant]
     Active Substance: DIFLUPREDNATE
  13. DEXAMETHASONE\NEOMYCIN\POLYMYXIN B [Concomitant]
     Active Substance: DEXAMETHASONE\NEOMYCIN\POLYMYXIN B

REACTIONS (6)
  - Photophobia [Not Recovered/Not Resolved]
  - Periorbital pain [Unknown]
  - Eye pain [Not Recovered/Not Resolved]
  - Eye infection [Unknown]
  - Eye inflammation [Unknown]
  - Disease recurrence [Unknown]
